FAERS Safety Report 7806407-4 (Version None)
Quarter: 2011Q4

REPORT INFORMATION
  Report Type: 
  Country: None (occurrence: None)
  Receive Date: 20111011
  Receipt Date: 20111006
  Transmission Date: 20120403
  Serious: Yes (Other)
  Sender: FDA-Public Use
  Company Number: US-BRISTOL-MYERS SQUIBB COMPANY-16139719

PATIENT

DRUGS (2)
  1. ABILIFY [Suspect]
     Dosage: 1DF:ONE AND HALF PILL
  2. ZOLOFT [Suspect]

REACTIONS (3)
  - ACCIDENTAL EXPOSURE [None]
  - ARRHYTHMIA [None]
  - LOSS OF CONSCIOUSNESS [None]
